FAERS Safety Report 6786216-8 (Version None)
Quarter: 2010Q2

REPORT INFORMATION
  Report Type: 
  Country: None (occurrence: None)
  Receive Date: 20100623
  Receipt Date: 20100616
  Transmission Date: 20101027
  Serious: Yes (Other)
  Sender: FDA-Public Use
  Company Number: US-ASTRAZENECA-2009AC01336

PATIENT
  Age: 9 Year
  Sex: Female
  Weight: 32 kg

DRUGS (3)
  1. QUETIAPINE [Suspect]
     Dosage: 200 MG AT BED TIME, AND 150 MG IN THE MORNING
     Route: 048
     Dates: start: 20061220, end: 20070205
  2. OXCARBAZEPINE [Suspect]
     Indication: BIPOLAR DISORDER
     Dosage: 900 MG AT BED TIME AND 600 MG IN THE MORNING
     Route: 048
  3. DIVALPROEX SODIUM [Concomitant]
     Route: 048
     Dates: start: 20100108

REACTIONS (2)
  - LEUKOPENIA [None]
  - NEUTROPENIA [None]
